FAERS Safety Report 10402546 (Version 1)
Quarter: 2014Q3

REPORT INFORMATION
  Report Type: Spontaneous
  Country: BR (occurrence: BR)
  Receive Date: 20140822
  Receipt Date: 20140822
  Transmission Date: 20150326
  Serious: Yes (Other)
  Sender: FDA-Public Use
  Company Number: BR-ASTRAZENECA-2014SE61282

PATIENT
  Sex: Female

DRUGS (1)
  1. MERONGEM [Suspect]
     Active Substance: MEROPENEM
     Route: 042

REACTIONS (1)
  - Hepatotoxicity [Unknown]
